FAERS Safety Report 17025027 (Version 2)
Quarter: 2019Q4

REPORT INFORMATION
  Report Type: Spontaneous
  Country: IT (occurrence: IT)
  Receive Date: 20191113
  Receipt Date: 20191129
  Transmission Date: 20200122
  Serious: Yes (Hospitalization, Other)
  Sender: FDA-Public Use
  Company Number: IT-ROCHE-2466660

PATIENT
  Age: 55 Year
  Sex: Female

DRUGS (15)
  1. LEVOFLOXACIN. [Suspect]
     Active Substance: LEVOFLOXACIN
     Indication: ROSEOLOVIRUS TEST POSITIVE
     Route: 065
  2. BETAHISTINE [Concomitant]
     Active Substance: BETAHISTINE
  3. AMLODIPINE [Concomitant]
     Active Substance: AMLODIPINE BESYLATE
  4. CHLORAL HYDRATE [Concomitant]
     Active Substance: CHLORAL HYDRATE
  5. CEFTRIAXONE. [Suspect]
     Active Substance: CEFTRIAXONE
     Indication: ROSEOLOVIRUS TEST POSITIVE
     Route: 065
  6. ROSUVASTATIN. [Concomitant]
     Active Substance: ROSUVASTATIN
  7. BIPERIDENE [Concomitant]
     Active Substance: BIPERIDEN
  8. DELORAZEPAM [Concomitant]
     Active Substance: DELORAZEPAM
  9. ADEMETIONINE [Concomitant]
     Active Substance: ADEMETIONINE
  10. MACROGOL [Concomitant]
     Active Substance: POLYETHYLENE GLYCOLS
  11. GANCICLOVIR. [Suspect]
     Active Substance: GANCICLOVIR
     Indication: ROSEOLOVIRUS TEST POSITIVE
     Route: 065
  12. SERTRALINE [Concomitant]
     Active Substance: SERTRALINE HYDROCHLORIDE
  13. OLMESARTAN MEDOXOMIL. [Concomitant]
     Active Substance: OLMESARTAN MEDOXOMIL
  14. ADEMETIONINE [Concomitant]
     Active Substance: ADEMETIONINE
  15. PANTOPRAZOLE [Concomitant]
     Active Substance: PANTOPRAZOLE

REACTIONS (6)
  - Hypomagnesaemia [Recovered/Resolved]
  - Renal failure [Unknown]
  - Hypokalaemia [Recovered/Resolved]
  - Product use in unapproved indication [Unknown]
  - Bone marrow toxicity [Recovering/Resolving]
  - Intentional product use issue [Unknown]
